FAERS Safety Report 7284000-2 (Version None)
Quarter: 2011Q1

REPORT INFORMATION
  Report Type: 
  Country: None (occurrence: None)
  Receive Date: 20110209
  Receipt Date: 20110203
  Transmission Date: 20110831
  Serious: Yes (Death)
  Sender: FDA-Public Use
  Company Number: JP-GENZYME-201011615BYL

PATIENT
  Sex: Female

DRUGS (3)
  1. FLUDARA [Suspect]
     Indication: SPLENIC MARGINAL ZONE LYMPHOMA STAGE IV
     Dosage: 50 MG, QD
     Route: 048
     Dates: start: 20090630, end: 20090701
  2. VFEND [Concomitant]
     Indication: SINUSITIS
     Dosage: 300 MG, QD
     Route: 048
     Dates: start: 20090604, end: 20090804
  3. BARACLUDE [Concomitant]
     Indication: HEPATITIS B
     Dosage: 0.5 MG, QD
     Route: 048
     Dates: start: 20070901, end: 20090804

REACTIONS (3)
  - DEATH [None]
  - VARICELLA [None]
  - ASPARTATE AMINOTRANSFERASE INCREASED [None]
